FAERS Safety Report 16595575 (Version 1)
Quarter: 2019Q3

REPORT INFORMATION
  Report Type: Spontaneous
  Country: US (occurrence: US)
  Receive Date: 20190605
  Receipt Date: 20190605
  Transmission Date: 20191004
  Serious: Yes (Hospitalization)
  Sender: FDA-Public Use
  Company Number: None

PATIENT
  Age: 63 Year
  Sex: Female
  Weight: 64.3 kg

DRUGS (1)
  1. DECITABINE. [Suspect]
     Active Substance: DECITABINE
     Dates: end: 20190514

REACTIONS (4)
  - Pericardial effusion [None]
  - Rhinovirus infection [None]
  - Febrile neutropenia [None]
  - Pneumonia viral [None]

NARRATIVE: CASE EVENT DATE: 20190603
